FAERS Safety Report 4402333-1 (Version None)
Quarter: 2004Q3

REPORT INFORMATION
  Report Type: 
  Country: None (occurrence: None)
  Receive Date: 20040716
  Receipt Date: 20040625
  Transmission Date: 20050211
  Serious: No
  Sender: FDA-Public Use
  Company Number: 8363

PATIENT
  Age: 2 Day
  Sex: Female

DRUGS (2)
  1. LABETALOL HCL [Suspect]
  2. LAMOTRIGINE [Suspect]

REACTIONS (1)
  - CONVULSION [None]
